FAERS Safety Report 15419891 (Version 1)
Quarter: 2018Q3

REPORT INFORMATION
  Report Type: Report from Study
  Country: IT (occurrence: IT)
  Receive Date: 20180924
  Receipt Date: 20180924
  Transmission Date: 20181010
  Serious: Yes (Hospitalization)
  Sender: FDA-Public Use
  Company Number: IT-PFIZER INC-2018380350

PATIENT
  Age: 75 Year
  Sex: Female

DRUGS (4)
  1. PREDNISONE. [Concomitant]
     Active Substance: PREDNISONE
     Dosage: 5 MG, UNK
  2. COUMADIN [Interacting]
     Active Substance: WARFARIN SODIUM
     Indication: HEART VALVE OPERATION
     Dosage: 5 MG, AS NEEDED
     Route: 048
  3. SERTRALINE HCL [Suspect]
     Active Substance: SERTRALINE HYDROCHLORIDE
     Indication: DEPRESSION
     Dosage: 25 MG, 1X/DAY
     Route: 048
  4. ILOPROST TROMETAMOL [Interacting]
     Active Substance: ILOPROST TROMETHAMINE
     Indication: RAYNAUD^S PHENOMENON
     Dosage: 1 DF, CYCLIC
     Route: 042

REACTIONS (7)
  - Anaemia [Recovering/Resolving]
  - Drug interaction [Recovering/Resolving]
  - International normalised ratio increased [Recovering/Resolving]
  - Abdominal pain [Recovering/Resolving]
  - Overdose [Recovering/Resolving]
  - Intestinal haemorrhage [Recovering/Resolving]
  - Melaena [Recovering/Resolving]

NARRATIVE: CASE EVENT DATE: 20180716
